FAERS Safety Report 14415209 (Version 1)
Quarter: 2018Q1

REPORT INFORMATION
  Report Type: Other
  Country: PT (occurrence: PT)
  Receive Date: 20180121
  Receipt Date: 20180121
  Transmission Date: 20180509
  Serious: Yes (Hospitalization, Other)
  Sender: FDA-Public Use
  Company Number: PT-GLENMARK PHARMACEUTICALS-2017GMK030870

PATIENT

DRUGS (1)
  1. OLMESARTAN MEDOXOMIL. [Suspect]
     Active Substance: OLMESARTAN MEDOXOMIL
     Indication: PRODUCT USED FOR UNKNOWN INDICATION
     Dosage: 20 MG, UNK
     Route: 065

REACTIONS (7)
  - Weight decreased [Recovered/Resolved]
  - Sprue-like enteropathy [Recovered/Resolved]
  - Mucosal atrophy [Recovered/Resolved]
  - Metabolic acidosis [Recovered/Resolved]
  - Asthenia [Recovered/Resolved]
  - Acute kidney injury [Recovered/Resolved]
  - Diarrhoea [Recovered/Resolved]
